FAERS Safety Report 7771009-5 (Version None)
Quarter: 2011Q3

REPORT INFORMATION
  Report Type: 
  Country: None (occurrence: None)
  Receive Date: 20110922
  Receipt Date: 20100901
  Transmission Date: 20111222
  Serious: Yes (Hospitalization)
  Sender: FDA-Public Use
  Company Number: US-ASTRAZENECA-2010SE41423

PATIENT
  Age: 13 Year
  Sex: Male
  Weight: 56.7 kg

DRUGS (5)
  1. ABILIFY [Concomitant]
  2. SEROQUEL XR [Suspect]
     Route: 048
  3. SEROQUEL XR [Suspect]
     Route: 048
     Dates: start: 20100825
  4. SEROQUEL XR [Suspect]
     Indication: BIPOLAR DISORDER
     Route: 048
     Dates: start: 20100301
  5. SEROQUEL XR [Suspect]
     Route: 048

REACTIONS (3)
  - AGITATION [None]
  - AGGRESSION [None]
  - PSYCHOTIC DISORDER [None]
